FAERS Safety Report 5997467-4 (Version None)
Quarter: 2008Q4

REPORT INFORMATION
  Report Type: 
  Country: None (occurrence: None)
  Receive Date: 20081212
  Receipt Date: 20081111
  Transmission Date: 20090506
  Serious: No
  Sender: FDA-Public Use
  Company Number: US-ABBOTT-08P-163-0487447-00

PATIENT
  Sex: Female
  Weight: 70.37 kg

DRUGS (6)
  1. HUMIRA [Suspect]
     Indication: RHEUMATOID ARTHRITIS
     Dates: start: 20080208
  2. TRIAMCINOLONE [Concomitant]
     Indication: PREMEDICATION
  3. TRIAMCINOLONE [Concomitant]
     Indication: INJECTION SITE REACTION
  4. CIRRUS [Concomitant]
     Indication: PREMEDICATION
  5. CIRRUS [Concomitant]
     Indication: INJECTION SITE REACTION
  6. METHOTREXATE [Concomitant]
     Indication: DRUG USE FOR UNKNOWN INDICATION
     Dosage: 2.5 MILLIGRAMS

REACTIONS (5)
  - GINGIVITIS [None]
  - INJECTION SITE INDURATION [None]
  - INJECTION SITE PAIN [None]
  - INJECTION SITE REACTION [None]
  - INJECTION SITE SWELLING [None]
